FAERS Safety Report 6854475-9 (Version None)
Quarter: 2010Q3

REPORT INFORMATION
  Report Type: 
  Country: None (occurrence: None)
  Receive Date: 20100717
  Receipt Date: 20080108
  Transmission Date: 20110219
  Serious: No
  Sender: FDA-Public Use
  Company Number: US-PFIZER INC-2008003648

PATIENT
  Sex: Female
  Weight: 65.9 kg

DRUGS (4)
  1. CHANTIX [Suspect]
     Indication: SMOKING CESSATION THERAPY
     Route: 048
     Dates: start: 20071201, end: 20080108
  2. ANTIHYPERTENSIVES [Concomitant]
     Route: 048
  3. ANTIDEPRESSANTS [Concomitant]
     Indication: DEPRESSION
     Route: 048
  4. HERBAL NOS/MINERALS NOS [Concomitant]
     Indication: HYPERTENSION
     Route: 048

REACTIONS (5)
  - BED REST [None]
  - FEELING ABNORMAL [None]
  - HEADACHE [None]
  - INCORRECT DOSE ADMINISTERED [None]
  - VOMITING [None]
